FAERS Safety Report 13267613 (Version 1)
Quarter: 2017Q1

REPORT INFORMATION
  Report Type: Spontaneous
  Country: US (occurrence: US)
  Receive Date: 20170224
  Receipt Date: 20170224
  Transmission Date: 20170428
  Serious: No
  Sender: FDA-Public Use
  Company Number: US-PFIZER INC-2017079550

PATIENT
  Age: 76 Year
  Sex: Male

DRUGS (4)
  1. RISPERDAL [Suspect]
     Active Substance: RISPERIDONE
     Indication: AGITATION
     Dosage: 0.5 MG, 1X/DAY(EVERY MORNING)
     Route: 048
  2. RISPERDAL [Suspect]
     Active Substance: RISPERIDONE
     Indication: ANXIETY
     Dosage: 2 MG, 1X/DAY(EVERY EVENING)
     Route: 048
  3. RISPERDAL [Suspect]
     Active Substance: RISPERIDONE
     Dosage: 0.5 MG, AS NEEDED(2 TIMES DAILY,FOR OTHER FOR UPTO 30 DAYS)
     Route: 048
  4. XANAX [Suspect]
     Active Substance: ALPRAZOLAM
     Indication: AGITATION
     Dosage: 1 MG, UNK
     Route: 048

REACTIONS (1)
  - Drug effect incomplete [Unknown]
